FAERS Safety Report 8571224-7 (Version None)
Quarter: 2012Q3

REPORT INFORMATION
  Report Type: 
  Country: None (occurrence: None)
  Receive Date: 20120730
  Receipt Date: 20120730
  Transmission Date: 20120928
  Serious: No
  Sender: FDA-Public Use
  Company Number: None

PATIENT
  Age: 50 Year
  Sex: Male
  Weight: 89.1 kg

DRUGS (5)
  1. AMOXICILLIN [Suspect]
     Indication: TOOTH DISORDER
     Dosage: 500 MG, BID, PO
     Route: 048
     Dates: start: 20120327, end: 20120406
  2. AMOXICILLIN [Suspect]
     Indication: TOOTH INFECTION
     Dosage: 500 MG, BID, PO
     Route: 048
     Dates: start: 20120327, end: 20120406
  3. BUPROPION HCL [Suspect]
     Indication: MANIA
     Dosage: 100 MG, EVERY DAY, PO
     Route: 048
     Dates: start: 20120312, end: 20120601
  4. BUPROPION HCL [Suspect]
     Indication: SMOKING CESSATION THERAPY
     Dosage: 100 MG, EVERY DAY, PO
     Route: 048
     Dates: start: 20120312, end: 20120601
  5. BUPROPION HCL [Suspect]
     Indication: BIPOLAR DISORDER
     Dosage: 100 MG, EVERY DAY, PO
     Route: 048
     Dates: start: 20120312, end: 20120601

REACTIONS (2)
  - RASH [None]
  - LEUKOCYTOCLASTIC VASCULITIS [None]
